FAERS Safety Report 9388877 (Version 1)
Quarter: 2013Q3

REPORT INFORMATION
  Report Type: Spontaneous
  Country: FR (occurrence: FR)
  Receive Date: 20130708
  Receipt Date: 20130708
  Transmission Date: 20140515
  Serious: Yes (Hospitalization)
  Sender: FDA-Public Use
  Company Number: FR-JNJFOC-20130702406

PATIENT
  Age: 24 Year
  Sex: Female

DRUGS (1)
  1. IXPRIM [Suspect]
     Indication: PAIN
     Route: 048
     Dates: start: 20130124, end: 20130124

REACTIONS (2)
  - Prothrombin time abnormal [Recovered/Resolved]
  - Overdose [Recovered/Resolved]
